FAERS Safety Report 5492814-4 (Version None)
Quarter: 2007Q4

REPORT INFORMATION
  Report Type: 
  Country: None (occurrence: None)
  Receive Date: 20071019
  Receipt Date: 20071010
  Transmission Date: 20080405
  Serious: Yes (Hospitalization)
  Sender: FDA-Public Use
  Company Number: E3810-01307-SPO-AU

PATIENT
  Age: 63 Year
  Sex: Male

DRUGS (1)
  1. RABEPRAZOLE SODIUM [Suspect]
     Indication: GASTROOESOPHAGEAL REFLUX DISEASE
     Dosage: 20 MG, ORAL; 6 YEARS AGO
     Route: 048

REACTIONS (3)
  - BLOOD BICARBONATE DECREASED [None]
  - PEAU D'ORANGE [None]
  - RENAL IMPAIRMENT [None]
